FAERS Safety Report 13524140 (Version 1)
Quarter: 2017Q2

REPORT INFORMATION
  Report Type: Spontaneous
  Country: FR (occurrence: FR)
  Receive Date: 20170508
  Receipt Date: 20170508
  Transmission Date: 20170830
  Serious: Yes (Other)
  Sender: FDA-Public Use
  Company Number: FR-NOVOPROD-543395

PATIENT
  Sex: Male
  Weight: 14.3 kg

DRUGS (3)
  1. NORDITROPIN [Suspect]
     Active Substance: SOMATROPIN
     Indication: GROWTH HORMONE DEFICIENCY
     Dosage: 33 ?G/KG, QD
     Route: 058
     Dates: start: 20091204, end: 201011
  2. NORDITROPIN [Suspect]
     Active Substance: SOMATROPIN
     Dosage: 50 ?G/KG, QD
     Route: 058
     Dates: start: 201011, end: 201102
  3. NORDITROPIN [Suspect]
     Active Substance: SOMATROPIN
     Dosage: UNK
     Route: 058
     Dates: end: 201105

REACTIONS (3)
  - Adenoidal hypertrophy [Not Recovered/Not Resolved]
  - Conjunctivitis [Recovered/Resolved]
  - Rhinitis [Unknown]

NARRATIVE: CASE EVENT DATE: 201005
